FAERS Safety Report 8594981-2 (Version None)
Quarter: 2012Q3

REPORT INFORMATION
  Report Type: 
  Country: None (occurrence: None)
  Receive Date: 20120815
  Receipt Date: 20120809
  Transmission Date: 20120928
  Serious: Yes (Other)
  Sender: FDA-Public Use
  Company Number: PHEH2012US015626

PATIENT
  Sex: Female

DRUGS (4)
  1. METFORMIN HYDROCHLORIDE [Concomitant]
     Dosage: UNK
  2. METAXALONE [Concomitant]
     Dosage: UNK
  3. DIOVAN HCT [Suspect]
     Indication: BLOOD PRESSURE
     Dosage: UNK
  4. VICODIN [Concomitant]
     Dosage: UNK

REACTIONS (4)
  - MUSCULOSKELETAL DISCOMFORT [None]
  - OVERWEIGHT [None]
  - MYELOPATHY [None]
  - BACK PAIN [None]
